FAERS Safety Report 8172863-8 (Version None)
Quarter: 2012Q1

REPORT INFORMATION
  Report Type: 
  Country: None (occurrence: None)
  Receive Date: 20120229
  Receipt Date: 20120216
  Transmission Date: 20120608
  Serious: Yes (Other)
  Sender: FDA-Public Use
  Company Number: CA-JNJFOC-20120209095

PATIENT
  Sex: Male
  Weight: 76.6 kg

DRUGS (5)
  1. PREDNISONE [Concomitant]
     Route: 065
  2. METHOTREXATE [Concomitant]
     Route: 065
  3. MISOPROSTOL [Concomitant]
     Route: 065
  4. REMICADE [Suspect]
     Indication: RHEUMATOID ARTHRITIS
     Route: 042
     Dates: start: 20030101
  5. NAPROSYN [Concomitant]
     Route: 065

REACTIONS (1)
  - COLITIS [None]
